FAERS Safety Report 4605006-5 (Version None)
Quarter: 2005Q2

REPORT INFORMATION
  Report Type: 
  Country: None (occurrence: None)
  Receive Date: 20050217
  Receipt Date: 20041109
  Transmission Date: 20051028
  Serious: No
  Sender: FDA-Public Use
  Company Number: S04-USA-05821-01

PATIENT
  Age: 51 Year
  Sex: Female

DRUGS (10)
  1. NAMENDA [Suspect]
     Indication: CEREBROVASCULAR ACCIDENT
     Dosage: 10 MG BID PO
     Route: 048
     Dates: start: 20040101
  2. NAMENDA [Suspect]
     Indication: DEMENTIA ALZHEIMER'S TYPE
     Dosage: 10 MG BID PO
     Route: 048
     Dates: start: 20040101
  3. NAMENDA [Suspect]
     Indication: CEREBROVASCULAR ACCIDENT
     Dosage: 5 MG QD PO
     Route: 048
     Dates: start: 20040823, end: 20040101
  4. NAMENDA [Suspect]
     Indication: DEMENTIA ALZHEIMER'S TYPE
     Dosage: 5 MG QD PO
     Route: 048
     Dates: start: 20040823, end: 20040101
  5. NAMENDA [Suspect]
     Indication: CEREBROVASCULAR ACCIDENT
     Dates: start: 20040101, end: 20040101
  6. NAMENDA [Suspect]
     Indication: DEMENTIA ALZHEIMER'S TYPE
     Dates: start: 20040101, end: 20040101
  7. ARICEPT [Concomitant]
  8. CIPROFLOXACIN HCL [Concomitant]
  9. DIOVAN HCT [Concomitant]
  10. INSULIN [Concomitant]

REACTIONS (1)
  - MUSCLE TWITCHING [None]
